FAERS Safety Report 8365297-4 (Version None)
Quarter: 2012Q2

REPORT INFORMATION
  Report Type: 
  Country: None (occurrence: None)
  Receive Date: 20120516
  Receipt Date: 20120515
  Transmission Date: 20120825
  Serious: No
  Sender: FDA-Public Use
  Company Number: US-TEVA-332542USA

PATIENT
  Sex: Female
  Weight: 54.48 kg

DRUGS (1)
  1. PLAN B ONE-STEP [Suspect]
     Indication: POST COITAL CONTRACEPTION
     Dosage: 1.5 MILLIGRAM;
     Route: 048
     Dates: start: 20120320, end: 20120320

REACTIONS (14)
  - NIPPLE DISORDER [None]
  - PREGNANCY [None]
  - SKIN DISCOLOURATION [None]
  - HEADACHE [None]
  - OFF LABEL USE [None]
  - BREAST ENLARGEMENT [None]
  - MENSTRUATION IRREGULAR [None]
  - NAUSEA [None]
  - BREAST PAIN [None]
  - FATIGUE [None]
  - BREAST SWELLING [None]
  - SKIN STRIAE [None]
  - SUPERFICIAL VEIN PROMINENCE [None]
  - DIZZINESS [None]
